FAERS Safety Report 7153195-3 (Version None)
Quarter: 2010Q4

REPORT INFORMATION
  Report Type: 
  Country: None (occurrence: None)
  Receive Date: 20101213
  Receipt Date: 20101129
  Transmission Date: 20110411
  Serious: Yes (Disabling, Other)
  Sender: FDA-Public Use
  Company Number: CA-ELI_LILLY_AND_COMPANY-CA201011007224

PATIENT
  Sex: Male

DRUGS (12)
  1. ZYPREXA [Suspect]
     Dosage: UNK, 25 TO 30MG DAILY
     Route: 048
     Dates: start: 19970821
  2. ZYPREXA ZYDIS [Suspect]
     Dosage: UNK, 25 TO 30MG DAILY
     Route: 048
     Dates: end: 20080812
  3. ATENOLOL [Concomitant]
     Dosage: 50 MG, DAILY (1/D)
     Route: 048
  4. MONOPRIL [Concomitant]
     Dosage: UNK, AS NEEDED
     Route: 048
  5. PAXIL [Concomitant]
     Dosage: 10 MG, DAILY (1/D)
     Route: 048
  6. TOPAMAX [Concomitant]
     Dosage: 25 MG, DAILY (1/D)
     Route: 048
  7. CELEXA [Concomitant]
     Dosage: 20 MG, DAILY (1/D)
     Route: 048
  8. LIPITOR [Concomitant]
     Dosage: 10 MG, DAILY (1/D)
     Route: 065
  9. AVANDIA [Concomitant]
     Dosage: 4 MG, DAILY (1/D)
     Route: 048
  10. AVAPRO [Concomitant]
     Dosage: 150 MG, DAILY (1/D)
     Route: 048
  11. CIPRALEX [Concomitant]
     Dosage: 10 MG, DAILY (1/D)
     Route: 048
  12. ZELDOX [Concomitant]
     Dosage: 80 MG, 2/D
     Route: 065

REACTIONS (10)
  - ABDOMINAL PAIN UPPER [None]
  - DIABETES MELLITUS [None]
  - DIABETES MELLITUS INADEQUATE CONTROL [None]
  - DISABILITY [None]
  - DYSPEPSIA [None]
  - OBESITY [None]
  - OVERDOSE [None]
  - SEXUAL DYSFUNCTION [None]
  - SLEEP APNOEA SYNDROME [None]
  - WEIGHT INCREASED [None]
